FAERS Safety Report 6031460-0 (Version None)
Quarter: 2009Q1

REPORT INFORMATION
  Report Type: 
  Country: None (occurrence: None)
  Receive Date: 20090108
  Receipt Date: 20081220
  Transmission Date: 20090719
  Serious: Yes (Other)
  Sender: FDA-Public Use
  Company Number: BR-PFIZER INC-2008049755

PATIENT

DRUGS (6)
  1. CHAMPIX [Suspect]
     Indication: SMOKING CESSATION THERAPY
     Dosage: 1 MG, 2X/DAY
     Route: 048
     Dates: start: 20080101
  2. ALLOPURINOL [Concomitant]
     Route: 065
     Dates: start: 19930101
  3. FLUOXETINE [Concomitant]
     Route: 065
     Dates: start: 20020101
  4. ROSUVASTATIN CALCIUM [Concomitant]
     Route: 065
  5. LOSARTAN POTASSIUM [Concomitant]
     Route: 065
  6. BUSPIRONE HCL [Concomitant]
     Route: 065
     Dates: start: 20080301

REACTIONS (3)
  - DIZZINESS [None]
  - NAUSEA [None]
  - TACHYCARDIA [None]
